FAERS Safety Report 4749475-9 (Version None)
Quarter: 2005Q3

REPORT INFORMATION
  Report Type: 
  Country: None (occurrence: None)
  Receive Date: 20050822
  Receipt Date: 20050314
  Transmission Date: 20060218
  Serious: Yes (Death)
  Sender: FDA-Public Use
  Company Number: US-NOVOPROD-243137

PATIENT
  Age: 10 Year
  Sex: Male
  Weight: 24 kg

DRUGS (4)
  1. NORDITROPIN? [Suspect]
     Indication: GROWTH HORMONE DEFICIENCY
     Dosage: 1.2 MG, 6 TIMES A WEEK
     Route: 058
     Dates: start: 20041022, end: 20041101
  2. PREDNISONE [Concomitant]
     Indication: HYPOPITUITARISM
     Dosage: .7 MG, BID
     Route: 048
  3. LEVOXYL [Concomitant]
     Indication: HYPOPITUITARISM
     Dosage: 50 UG, QD
     Route: 048
  4. TYLENOL [Concomitant]
     Indication: FEELING ABNORMAL
     Dates: start: 20050313, end: 20050313

REACTIONS (2)
  - MALAISE [None]
  - SUDDEN DEATH [None]
